FAERS Safety Report 19151663 (Version 1)
Quarter: 2021Q2

REPORT INFORMATION
  Report Type: Report from Study
  Country: JP (occurrence: JP)
  Receive Date: 20210419
  Receipt Date: 20210419
  Transmission Date: 20210717
  Serious: Yes (Hospitalization, Other)
  Sender: FDA-Public Use
  Company Number: JP-JNJFOC-A-CH2018-175681

PATIENT
  Age: 59 Year
  Sex: Female

DRUGS (17)
  1. PREDONINE [Suspect]
     Active Substance: PREDNISOLONE
     Indication: SYSTEMIC SCLERODERMA
     Dosage: 5 MG, QD
     Route: 048
     Dates: start: 20090226, end: 20191016
  2. BAYASPIRIN [Suspect]
     Active Substance: ASPIRIN
     Indication: SYSTEMIC SCLERODERMA
     Dosage: 100 MG, QD
     Route: 048
     Dates: start: 20121110, end: 20191016
  3. TRAMCET [Concomitant]
     Active Substance: ACETAMINOPHEN\TRAMADOL
  4. NAUZELIN [Concomitant]
     Active Substance: DOMPERIDONE
  5. BONOTEO [Concomitant]
     Active Substance: MINODRONIC ACID
  6. JZOLOFT [Concomitant]
     Active Substance: SERTRALINE HYDROCHLORIDE
  7. TRACLEER [Suspect]
     Active Substance: BOSENTAN
     Indication: SCLERODERMA ASSOCIATED DIGITAL ULCER
     Dosage: 62.5 MG, BID
     Route: 048
     Dates: start: 20170719, end: 20191016
  8. PARIET [Concomitant]
     Active Substance: RABEPRAZOLE SODIUM
     Dosage: 20 MG, QD
  9. VOLTAREN [Concomitant]
     Active Substance: DICLOFENAC SODIUM
  10. MAGMITT [Concomitant]
     Active Substance: MAGNESIUM OXIDE
  11. PURSENNIDE [Concomitant]
  12. ADALAT [Concomitant]
     Active Substance: NIFEDIPINE
  13. PARIET [Concomitant]
     Active Substance: RABEPRAZOLE SODIUM
     Dosage: 10 MG, QD
  14. FIBLAST [Concomitant]
  15. HOCHUEKKITO [Concomitant]
     Active Substance: HERBALS
  16. LUNESTA [Concomitant]
     Active Substance: ESZOPICLONE
  17. JUVELA N [Concomitant]
     Active Substance: TOCOPHERYL NICOTINATE, D-.ALPHA.

REACTIONS (10)
  - Occult blood positive [Recovering/Resolving]
  - Alanine aminotransferase increased [Recovering/Resolving]
  - Pneumonia [Unknown]
  - Iron deficiency anaemia [Recovering/Resolving]
  - Aspartate aminotransferase increased [Recovering/Resolving]
  - Gamma-glutamyltransferase increased [Recovering/Resolving]
  - Blood alkaline phosphatase increased [Recovering/Resolving]
  - Duodenal ulcer [Unknown]
  - Vasodilation procedure [Unknown]
  - Hepatic function abnormal [Recovering/Resolving]

NARRATIVE: CASE EVENT DATE: 20170920
